FAERS Safety Report 7298834-1 (Version None)
Quarter: 2011Q1

REPORT INFORMATION
  Report Type: 
  Country: None (occurrence: None)
  Receive Date: 20110208
  Receipt Date: 20110125
  Transmission Date: 20110831
  Serious: Yes (Other)
  Sender: FDA-Public Use
  Company Number: DE-1184036

PATIENT
  Sex: Female

DRUGS (3)
  1. DEXA GENTAMICIN [Concomitant]
  2. POLYSPECTRAN OPHTHALMIC SOLUION (POLYSPECTRAN) [Suspect]
     Dosage: OPHTHALMIC
     Dates: start: 20101102
  3. VIGAMOX [Suspect]
     Dosage: OPHTHALMIC
     Route: 047
     Dates: start: 20101001

REACTIONS (4)
  - LENTICULAR OPACITIES [None]
  - VIRAL INFECTION [None]
  - PROCEDURAL COMPLICATION [None]
  - CORNEAL ABRASION [None]
